FAERS Safety Report 20430400 (Version 1)
Quarter: 2022Q1

REPORT INFORMATION
  Report Type: Report from Study
  Country: FR (occurrence: FR)
  Receive Date: 20220204
  Receipt Date: 20220204
  Transmission Date: 20220423
  Serious: Yes (Hospitalization, Other)
  Sender: FDA-Public Use
  Company Number: FR-SERVIER-S20007054

PATIENT

DRUGS (9)
  1. PEGASPARGASE [Suspect]
     Active Substance: PEGASPARGASE
     Indication: Acute lymphocytic leukaemia
     Dosage: 3100 IU, QD, D6
     Route: 042
     Dates: start: 20200524, end: 20200524
  2. MITOXANTRONE [Suspect]
     Active Substance: MITOXANTRONE HYDROCHLORIDE
     Indication: Acute lymphocytic leukaemia
     Dosage: 10 MG, ON D3, D4
     Route: 042
     Dates: start: 20200521, end: 20200523
  3. TN UNSPECIFIED [Concomitant]
     Indication: Acute lymphocytic leukaemia
     Dosage: 190 MG, FROM D3 TO D5
     Route: 042
     Dates: start: 20200521, end: 20200523
  4. TN UNSEPCIFIED [Concomitant]
     Indication: Acute lymphocytic leukaemia
     Dosage: 24.5 MG, FROM D1 TO D5
     Route: 048
     Dates: start: 20200519, end: 20200523
  5. TN UNSEPCIFIED [Concomitant]
     Dosage: 12 MG, ON D6
     Route: 048
     Dates: start: 20200524, end: 20200524
  6. TN UNSEPCIFIED [Concomitant]
     Indication: Acute lymphocytic leukaemia
     Dosage: 5000 MG, ON D1 D2
     Route: 042
     Dates: start: 20200519, end: 20200520
  7. TN UNSEPCIFIED [Concomitant]
     Dosage: 30 MG ON D5
     Route: 037
     Dates: start: 20200523, end: 20200523
  8. TN UNSEPCIFIED [Concomitant]
     Indication: Acute lymphocytic leukaemia
     Dosage: 15 MG, ON D5
     Route: 037
     Dates: start: 20200523, end: 20200523
  9. TN  UNSPECIFIED [Concomitant]
     Indication: Acute lymphocytic leukaemia
     Dosage: 15 MG, ON D5
     Route: 037
     Dates: start: 20200523, end: 20200523

REACTIONS (2)
  - Appendicitis perforated [Not Recovered/Not Resolved]
  - Sepsis [Recovered/Resolved]

NARRATIVE: CASE EVENT DATE: 20200529
